FAERS Safety Report 5358420-7 (Version None)
Quarter: 2007Q2

REPORT INFORMATION
  Report Type: 
  Country: None (occurrence: None)
  Receive Date: 20070530
  Receipt Date: 20061026
  Transmission Date: 20071010
  Serious: Yes (Other)
  Sender: FDA-Public Use
  Company Number: US200512001518

PATIENT
  Age: 42 Year
  Sex: Female
  Weight: 129.3 kg

DRUGS (5)
  1. ZYPREXA [Suspect]
     Indication: SCHIZOPHRENIA
     Dosage: SEE IMAGE
     Dates: start: 19980214, end: 20020101
  2. ZYPREXA [Suspect]
     Indication: SCHIZOPHRENIA
     Dosage: SEE IMAGE
     Dates: start: 20020201, end: 20030801
  3. ZYPREXA [Suspect]
     Indication: SCHIZOPHRENIA
     Dosage: SEE IMAGE
     Dates: start: 20030801, end: 20040701
  4. LITHIUM CARBONATE [Concomitant]
  5. MEDROXYPROGESTERONE [Concomitant]

REACTIONS (3)
  - DIABETES MELLITUS NON-INSULIN-DEPENDENT [None]
  - METABOLIC DISORDER [None]
  - WEIGHT INCREASED [None]
